FAERS Safety Report 4808291-X (Version None)
Quarter: 2005Q4

REPORT INFORMATION
  Report Type: 
  Country: None (occurrence: None)
  Receive Date: 20051021
  Receipt Date: 20051005
  Transmission Date: 20060501
  Serious: Yes (Other)
  Sender: FDA-Public Use
  Company Number: 2005-DE-04108GD

PATIENT

DRUGS (2)
  1. MIDAZOLAM HCL [Suspect]
     Indication: SEDATIVE THERAPY
     Dosage: MEAN DOSE WAS 5 MG (NR), NR
  2. MEPERIDINE HCL [Suspect]
     Indication: ANALGESIC EFFECT
     Dosage: MEAN DOSE WAS 50 MG (NR), NR

REACTIONS (2)
  - HYPERSENSITIVITY [None]
  - RESPIRATORY DISTRESS [None]
